FAERS Safety Report 7595066-4 (Version None)
Quarter: 2011Q2

REPORT INFORMATION
  Report Type: 
  Country: None (occurrence: None)
  Receive Date: 20110620
  Receipt Date: 20110308
  Transmission Date: 20111010
  Serious: Yes (Hospitalization)
  Sender: FDA-Public Use
  Company Number: UTC-005596

PATIENT
  Age: 75 Year
  Sex: Female
  Weight: 55.5 kg

DRUGS (3)
  1. TYVASO [Suspect]
     Dosage: 192 MCG (48 MCG, 4 IN 1 D), INHALATION
     Route: 055
     Dates: start: 20100515
  2. REVATIO [Concomitant]
  3. LETAIRIS [Concomitant]

REACTIONS (1)
  - URINARY TRACT INFECTION [None]
